FAERS Safety Report 4603138-9 (Version None)
Quarter: 2005Q1

REPORT INFORMATION
  Report Type: 
  Country: None (occurrence: None)
  Receive Date: 20050307
  Receipt Date: 20050221
  Transmission Date: 20050727
  Serious: Yes (Death)
  Sender: FDA-Public Use
  Company Number: GBWYE452323FEB05

PATIENT
  Age: 42 Year
  Sex: Female

DRUGS (6)
  1. ADVIL [Suspect]
  2. CANNABIS (CANNABIS) [Concomitant]
  3. COCAINE (COCAINE, 0) [Suspect]
     Dosage: 20MG
     Route: 048
  4. DIAZEPAM [Suspect]
     Dosage: 20 MG,
     Route: 048
  5. OXAZEPAM [Suspect]
  6. SUBUTEX [Suspect]
     Dosage: 4 MG,
     Route: 060

REACTIONS (4)
  - DRUG EXPOSURE DURING PREGNANCY [None]
  - DRUG LEVEL BELOW THERAPEUTIC [None]
  - INTRA-UTERINE DEATH [None]
  - MULTIPLE DRUG OVERDOSE [None]
